FAERS Safety Report 7508155-7 (Version None)
Quarter: 2011Q2

REPORT INFORMATION
  Report Type: 
  Country: None (occurrence: None)
  Receive Date: 20110527
  Receipt Date: 20110513
  Transmission Date: 20111010
  Serious: Yes (Other)
  Sender: FDA-Public Use
  Company Number: US-BAYER-2011-003448

PATIENT
  Age: 19 Year
  Sex: Female
  Weight: 62.585 kg

DRUGS (7)
  1. DROSPIRENONE AND ETHINYL ESTRADIOL [Suspect]
     Indication: ACNE
     Dosage: UNK
     Dates: start: 20080730, end: 20091201
  2. YASMIN [Suspect]
     Indication: ACNE
     Dosage: UNK
     Dates: start: 20070101, end: 20080729
  3. DROSPIRENONE AND ETHINYL ESTRADIOL [Suspect]
     Indication: CONTRACEPTION
     Dosage: UNK
     Dates: start: 20100101
  4. SOTRET [Concomitant]
     Indication: ACNE
     Dosage: UNK
     Dates: start: 20080601, end: 20080901
  5. MACROBID [Concomitant]
     Dosage: UNK
     Route: 048
     Dates: start: 20081230, end: 20090101
  6. IBUPROFEN [Concomitant]
     Dosage: UNK
     Route: 048
     Dates: start: 20081201, end: 20090101
  7. HYDROCODONE BITARTRATE AND ACETAMINOPHEN [Concomitant]
     Indication: ANALGESIC THERAPY
     Dosage: UNK
     Route: 048
     Dates: start: 20081201

REACTIONS (7)
  - PAIN [None]
  - GALLBLADDER DISORDER [None]
  - CHOLELITHIASIS [None]
  - EMOTIONAL DISTRESS [None]
  - ABDOMINAL PAIN [None]
  - MENTAL DISORDER [None]
  - CHOLECYSTITIS CHRONIC [None]
